FAERS Safety Report 9581849 (Version 2)
Quarter: 2019Q4

REPORT INFORMATION
  Report Type: Spontaneous
  Country: US (occurrence: US)
  Receive Date: 20131002
  Receipt Date: 20191219
  Transmission Date: 20200122
  Serious: Yes (Other)
  Sender: FDA-Public Use
  Company Number: US-UCBSA-098614

PATIENT

DRUGS (2)
  1. CIMZIA [Suspect]
     Active Substance: CERTOLIZUMAB PEGOL
     Indication: RHEUMATOID ARTHRITIS
  2. BIOTIN [Concomitant]
     Active Substance: BIOTIN
     Dosage: DAILY DOSE: 4000 MCG FOR YEARS

REACTIONS (1)
  - Psoriasis [Unknown]
